FAERS Safety Report 18679283 (Version 1)
Quarter: 2020Q4

REPORT INFORMATION
  Report Type: Spontaneous
  Country: FR (occurrence: FR)
  Receive Date: 20201229
  Receipt Date: 20201229
  Transmission Date: 20210114
  Serious: Yes (Hospitalization)
  Sender: FDA-Public Use
  Company Number: NVSC2020FR339033

PATIENT
  Age: 79 Year
  Sex: Male
  Weight: 86 kg

DRUGS (6)
  1. CABAZITAXEL [Suspect]
     Active Substance: CABAZITAXEL
     Indication: HORMONE-REFRACTORY PROSTATE CANCER
     Dosage: 25 MG/M2, TIW (25 MG/M2, Q3W)
     Route: 042
     Dates: start: 20201127, end: 20201127
  2. LENOGRASTIM [Suspect]
     Active Substance: LENOGRASTIM
     Indication: HORMONE-REFRACTORY PROSTATE CANCER
     Dosage: UNK (DAY 3 TO DAY 7 (5 DAYS) AFTER EVERY ADMINISTRATION OF CABAZITAXEL)
     Route: 065
  3. CABAZITAXEL [Suspect]
     Active Substance: CABAZITAXEL
     Dosage: 25 MG/M2, TIW (25 MG/M2, Q3W)
     Route: 042
  4. PREDNISONE. [Suspect]
     Active Substance: PREDNISONE
     Indication: HORMONE-REFRACTORY PROSTATE CANCER
     Dosage: 10 MG, QD (10 MG, QD)
     Route: 048
  5. PREDNISONE. [Suspect]
     Active Substance: PREDNISONE
     Dosage: 10 MG, QD (10 MG, QD)
     Route: 048
  6. LENOGRASTIM [Suspect]
     Active Substance: LENOGRASTIM
     Dosage: UNK (DAY 3 TO DAY 7 (5 DAYS) AFTER EVERY ADMINISTRATION OF CABAZITAXEL)
     Route: 065

REACTIONS (1)
  - Pancytopenia [Unknown]

NARRATIVE: CASE EVENT DATE: 20201207
